FAERS Safety Report 20534172 (Version 1)
Quarter: 2022Q1

REPORT INFORMATION
  Report Type: Report from Study
  Country: US (occurrence: US)
  Receive Date: 20220301
  Receipt Date: 20220301
  Transmission Date: 20220423
  Serious: Yes (Other)
  Sender: FDA-Public Use
  Company Number: US-CELGENE-USA-20220207397

PATIENT
  Sex: Male
  Weight: 94.886 kg

DRUGS (2)
  1. POMALYST [Suspect]
     Active Substance: POMALIDOMIDE
     Indication: Plasma cell myeloma in remission
     Dosage: 1 MILLIGRAM
     Route: 048
     Dates: start: 20220104
  2. POMALYST [Suspect]
     Active Substance: POMALIDOMIDE
     Indication: Plasma cell myeloma

REACTIONS (1)
  - Malaise [Unknown]
